FAERS Safety Report 4933959-4 (Version None)
Quarter: 2006Q1

REPORT INFORMATION
  Report Type: 
  Country: None (occurrence: None)
  Receive Date: 20060303
  Receipt Date: 20060215
  Transmission Date: 20060701
  Serious: No
  Sender: FDA-Public Use
  Company Number: 20062785

PATIENT
  Sex: 0

DRUGS (1)
  1. LIORESAL [Suspect]
     Indication: MUSCLE SPASTICITY
     Dosage: DAILY, INTRATHECAL
     Route: 037

REACTIONS (5)
  - ABDOMINAL RIGIDITY [None]
  - ANAPHYLACTIC SHOCK [None]
  - MUSCLE SPASTICITY [None]
  - PANIC ATTACK [None]
  - TONGUE DISORDER [None]
